FAERS Safety Report 5928780-4 (Version None)
Quarter: 2008Q4

REPORT INFORMATION
  Report Type: 
  Country: None (occurrence: None)
  Receive Date: 20081021
  Receipt Date: 20081010
  Transmission Date: 20090506
  Serious: Yes (Other)
  Sender: FDA-Public Use
  Company Number: CHNY2008JP03793

PATIENT
  Age: 50 Year
  Sex: Male

DRUGS (2)
  1. NICOTINE [Suspect]
     Indication: SMOKING CESSATION THERAPY
     Dosage: 14 MG, QD; TRANSDERMAL
     Route: 062
     Dates: start: 20080929, end: 20081010
  2. INSULIN (INSULIN) [Concomitant]

REACTIONS (2)
  - FLANK PAIN [None]
  - MYALGIA [None]
